FAERS Safety Report 5519142-2 (Version None)
Quarter: 2007Q4

REPORT INFORMATION
  Report Type: 
  Country: None (occurrence: None)
  Receive Date: 20071114
  Receipt Date: 20071114
  Transmission Date: 20080405
  Serious: Yes (Other)
  Sender: FDA-Public Use
  Company Number: None

PATIENT
  Age: 36 Year
  Sex: Female
  Weight: 88.4514 kg

DRUGS (2)
  1. LEVAQUIN [Suspect]
     Indication: BRONCHITIS
     Dosage: 750MG DAILY PO
     Route: 048
     Dates: start: 20071109, end: 20071112
  2. LEVAQUIN [Suspect]
     Indication: SINUSITIS
     Dosage: 750MG DAILY PO
     Route: 048
     Dates: start: 20071109, end: 20071112

REACTIONS (7)
  - ACTIVITIES OF DAILY LIVING IMPAIRED [None]
  - ARTHRALGIA [None]
  - ASTHENIA [None]
  - BACK PAIN [None]
  - DYSKINESIA [None]
  - INFECTION [None]
  - MUSCLE TWITCHING [None]
